FAERS Safety Report 9467952 (Version 1)
Quarter: 2013Q3

REPORT INFORMATION
  Report Type: Report from Study
  Country: BR (occurrence: BR)
  Receive Date: 20130821
  Receipt Date: 20130821
  Transmission Date: 20140515
  Serious: Yes (Other)
  Sender: FDA-Public Use
  Company Number: BR-ROCHE-1262415

PATIENT
  Sex: Female
  Weight: 62 kg

DRUGS (8)
  1. COPEGUS [Suspect]
     Indication: HEPATITIS C
     Route: 065
     Dates: start: 200012, end: 200111
  2. ROFERON-A [Suspect]
     Indication: HEPATITIS C
     Route: 065
     Dates: start: 200012, end: 200111
  3. CALADRYL (UNITED STATES) [Concomitant]
     Indication: IODINE ALLERGY
     Route: 065
  4. POLARAMINE [Concomitant]
     Indication: IODINE ALLERGY
     Route: 065
  5. LORATADINE [Concomitant]
     Indication: BRONCHITIS
     Route: 065
  6. AZITHROMYCIN [Concomitant]
     Indication: BRONCHITIS
     Route: 065
  7. LEVOID [Concomitant]
     Indication: THYROID DISORDER
     Dosage: TAKED UNDER FASTING
     Route: 065
  8. ENALAPRIL [Concomitant]
     Indication: HYPERTENSION
     Dosage: MORNINGS AND NIGHTS
     Route: 065

REACTIONS (8)
  - Viral load increased [Unknown]
  - Pyrexia [Unknown]
  - Headache [Unknown]
  - Hypotension [Unknown]
  - Blood uric acid abnormal [Unknown]
  - Anaemia [Unknown]
  - Burning sensation [Unknown]
  - Activities of daily living impaired [Unknown]
